FAERS Safety Report 5299322-4 (Version None)
Quarter: 2007Q1

REPORT INFORMATION
  Report Type: 
  Country: None (occurrence: None)
  Receive Date: 20070201
  Receipt Date: 20061103
  Transmission Date: 20070707
  Serious: No
  Sender: FDA-Public Use
  Company Number: 2006PV024520

PATIENT
  Age: 73 Year
  Sex: Female

DRUGS (1)
  1. BYETTA [Suspect]
     Indication: DIABETES MELLITUS NON-INSULIN-DEPENDENT
     Dosage: 5 MCG; SC
     Route: 058

REACTIONS (4)
  - HYPOGLYCAEMIA [None]
  - MEDICATION ERROR [None]
  - NAUSEA [None]
  - VOMITING [None]
